FAERS Safety Report 13844642 (Version 1)
Quarter: 2017Q3

REPORT INFORMATION
  Report Type: Report from Study
  Country: US (occurrence: US)
  Receive Date: 20170808
  Receipt Date: 20170808
  Transmission Date: 20171127
  Serious: Yes (Other)
  Sender: FDA-Public Use
  Company Number: US-BIOGEN-2015BI120917

PATIENT
  Sex: Male

DRUGS (1)
  1. TYSABRI [Suspect]
     Active Substance: NATALIZUMAB
     Indication: MULTIPLE SCLEROSIS
     Route: 042
     Dates: start: 20130911

REACTIONS (9)
  - Fall [Recovered/Resolved]
  - Eye degenerative disorder [Not Recovered/Not Resolved]
  - Feeling abnormal [Recovered/Resolved]
  - Bladder neoplasm [Recovered/Resolved]
  - Recurrent cancer [Recovered/Resolved with Sequelae]
  - Respiratory arrest [Recovered/Resolved]
  - Chest pain [Recovered/Resolved]
  - Neoplasm prostate [Recovered/Resolved]
  - Sleep apnoea syndrome [Not Recovered/Not Resolved]

NARRATIVE: CASE EVENT DATE: 2013
